FAERS Safety Report 10250586 (Version 3)
Quarter: 2014Q4

REPORT INFORMATION
  Report Type: Spontaneous
  Country: US (occurrence: US)
  Receive Date: 20140620
  Receipt Date: 20141105
  Transmission Date: 20150528
  Serious: Yes (Hospitalization)
  Sender: FDA-Public Use
  Company Number: US-GLAXOSMITHKLINE-A1077754A

PATIENT
  Sex: Male

DRUGS (22)
  1. DOXAZOSIN [Concomitant]
     Active Substance: DOXAZOSIN\DOXAZOSIN MESYLATE
  2. SIMVASTATIN. [Concomitant]
     Active Substance: SIMVASTATIN
  3. PRAMIPEXOLE [Concomitant]
     Active Substance: PRAMIPEXOLE
  4. CLARITIN (NOS) [Concomitant]
  5. TYLENOL [Concomitant]
     Active Substance: ACETAMINOPHEN
  6. METOLAZONE. [Concomitant]
     Active Substance: METOLAZONE
  7. OMEPRAZOLE. [Concomitant]
     Active Substance: OMEPRAZOLE
  8. NOVOLOG [Concomitant]
     Active Substance: INSULIN ASPART
  9. FINASTERIDE. [Concomitant]
     Active Substance: FINASTERIDE
  10. ADVAIR DISKUS [Suspect]
     Active Substance: FLUTICASONE PROPIONATE\SALMETEROL XINAFOATE
     Indication: MULTIPLE ALLERGIES
     Dosage: 1 PUFF(S), BID
     Route: 055
  11. FLUTICASONE NASAL SPRAY [Concomitant]
     Active Substance: FLUTICASONE\FLUTICASONE PROPIONATE
  12. CLONIDINE. [Concomitant]
     Active Substance: CLONIDINE
  13. AVODART [Concomitant]
     Active Substance: DUTASTERIDE
  14. AMLODIPINE [Concomitant]
     Active Substance: AMLODIPINE BESYLATE
  15. LEVEMIR [Concomitant]
     Active Substance: INSULIN DETEMIR
  16. COLCRYS [Concomitant]
     Active Substance: COLCHICINE
  17. ADVAIR DISKUS [Suspect]
     Active Substance: FLUTICASONE PROPIONATE\SALMETEROL XINAFOATE
     Indication: CHRONIC OBSTRUCTIVE PULMONARY DISEASE
     Dosage: 1 PUFF(S), BID
     Route: 055
     Dates: start: 2001
  18. CARVEDILOL. [Concomitant]
     Active Substance: CARVEDILOL
  19. FUROSEMIDE. [Concomitant]
     Active Substance: FUROSEMIDE
  20. CLONAZEPAM. [Concomitant]
     Active Substance: CLONAZEPAM
  21. METOLAZONE. [Concomitant]
     Active Substance: METOLAZONE
  22. HYDRALAZINE [Concomitant]
     Active Substance: HYDRALAZINE HYDROCHLORIDE

REACTIONS (5)
  - Sleep apnoea syndrome [Unknown]
  - Gout [Recovering/Resolving]
  - Dehydration [Unknown]
  - Hypotonia [Unknown]
  - Malaise [Unknown]

NARRATIVE: CASE EVENT DATE: 2012
